FAERS Safety Report 7219270-X (Version None)
Quarter: 2011Q1

REPORT INFORMATION
  Report Type: 
  Country: None (occurrence: None)
  Receive Date: 20110111
  Receipt Date: 20110103
  Transmission Date: 20110831
  Serious: Yes (Other)
  Sender: FDA-Public Use
  Company Number: US-PFIZER INC-2007083264

PATIENT
  Sex: Female
  Weight: 79.36 kg

DRUGS (5)
  1. LYRICA [Suspect]
     Indication: FIBROMYALGIA
     Dosage: 300 MG DAILY
     Route: 048
     Dates: start: 20070901
  2. LYRICA [Suspect]
     Dosage: 200 MG, 2X/DAY
     Route: 048
     Dates: start: 20080101
  3. OXYCONTIN [Concomitant]
     Indication: MUSCLE SPASMS
  4. FENTANYL [Concomitant]
     Route: 062
  5. SOMA [Concomitant]
     Indication: MUSCLE SPASMS

REACTIONS (2)
  - FEELING DRUNK [None]
  - OVERDOSE [None]
